FAERS Safety Report 19776796 (Version 1)
Quarter: 2021Q3

REPORT INFORMATION
  Report Type: Spontaneous
  Country: US (occurrence: US)
  Receive Date: 20210902
  Receipt Date: 20210902
  Transmission Date: 20211014
  Serious: Yes (Other)
  Sender: FDA-Public Use
  Company Number: US-SA-2021SA287937

PATIENT

DRUGS (2)
  1. ZANTAC [Suspect]
     Active Substance: RANITIDINE HYDROCHLORIDE
     Dates: start: 201401, end: 201911
  2. RANITIDINE. [Suspect]
     Active Substance: RANITIDINE
     Dosage: UNK
     Dates: start: 201401, end: 201911

REACTIONS (1)
  - Renal cancer [Unknown]

NARRATIVE: CASE EVENT DATE: 20130301
